FAERS Safety Report 4331123-3 (Version None)
Quarter: 2004Q1

REPORT INFORMATION
  Report Type: 
  Country: None (occurrence: None)
  Receive Date: 20040331
  Receipt Date: 20040318
  Transmission Date: 20041129
  Serious: Yes (Death)
  Sender: FDA-Public Use
  Company Number: 04USA0007

PATIENT
  Age: 62 Year
  Sex: Male

DRUGS (4)
  1. AGGRASTAT [Suspect]
     Indication: ACUTE CORONARY SYNDROME
     Dosage: INTRAVENOUS
     Route: 042
     Dates: start: 20040315, end: 20040315
  2. HEPARIN [Concomitant]
  3. PLAVIZ (CLOPIDOGREL SULFATE) [Concomitant]
  4. ASPIRIN [Concomitant]

REACTIONS (3)
  - BLEEDING TIME PROLONGED [None]
  - HAEMORRHAGE INTRACRANIAL [None]
  - HYPERTENSION [None]
